FAERS Safety Report 20667768 (Version 2)
Quarter: 2022Q2

REPORT INFORMATION
  Report Type: Spontaneous
  Country: AU (occurrence: AU)
  Receive Date: 20220404
  Receipt Date: 20220421
  Transmission Date: 20220721
  Serious: Yes (Hospitalization, Other)
  Sender: FDA-Public Use
  Company Number: AU-ABBVIE-22K-008-4342632-00

PATIENT

DRUGS (4)
  1. UPADACITINIB [Suspect]
     Active Substance: UPADACITINIB
     Indication: Dermatitis atopic
     Route: 048
     Dates: start: 20190910
  2. UPADACITINIB [Suspect]
     Active Substance: UPADACITINIB
     Route: 048
  3. VALACYCLOVIR HYDROCHLORIDE [Concomitant]
     Active Substance: VALACYCLOVIR HYDROCHLORIDE
     Indication: Product used for unknown indication
  4. ACYCLOVIR [Concomitant]
     Active Substance: ACYCLOVIR
     Indication: Product used for unknown indication
     Route: 061

REACTIONS (18)
  - COVID-19 [Recovered/Resolved]
  - Basal cell carcinoma [Unknown]
  - Skin cancer [Unknown]
  - Eye operation [Unknown]
  - Hypercholesterolaemia [Unknown]
  - Blood creatine phosphokinase increased [Unknown]
  - Liver disorder [Unknown]
  - Herpes ophthalmic [Unknown]
  - Leukopenia [Unknown]
  - Herpes simplex [Unknown]
  - Opportunistic infection [Unknown]
  - Herpes zoster [Unknown]
  - Eczema herpeticum [Unknown]
  - Dermatitis atopic [Not Recovered/Not Resolved]
  - Acne [Unknown]
  - Weight increased [Unknown]
  - Neutropenia [Unknown]
  - Lower respiratory tract infection bacterial [Unknown]

NARRATIVE: CASE EVENT DATE: 20210101
